FAERS Safety Report 21962948 (Version 1)
Quarter: 2023Q1

REPORT INFORMATION
  Report Type: Spontaneous
  Country: JP (occurrence: JP)
  Receive Date: 20230207
  Receipt Date: 20230207
  Transmission Date: 20230417
  Serious: No
  Sender: FDA-Public Use
  Company Number: JP-PFIZER INC-PV202200127352

PATIENT
  Age: 85 Year
  Sex: Male
  Weight: 52.1 kg

DRUGS (1)
  1. PAXLOVID [Suspect]
     Active Substance: NIRMATRELVIR\RITONAVIR
     Indication: COVID-19 treatment
     Dosage: [PF-07321332 150MG]/[RITONAVIR 100 MG]; 1X/DAY
     Route: 048
     Dates: start: 20221216, end: 20221216

REACTIONS (3)
  - Intentional product misuse [Unknown]
  - Off label use [Unknown]
  - Product use issue [Unknown]

NARRATIVE: CASE EVENT DATE: 20221216
